FAERS Safety Report 9795703 (Version 2)
Quarter: 2024Q4

REPORT INFORMATION
  Report Type: Spontaneous
  Country: IT (occurrence: IT)
  Receive Date: 20140103
  Receipt Date: 20241022
  Transmission Date: 20250115
  Serious: Yes (Death, Other)
  Sender: RANBAXY
  Company Number: IT-RANBAXY-2013R1-76858

PATIENT
  Age: 37 Year
  Sex: Male

DRUGS (10)
  1. MORPHINE [Interacting]
     Active Substance: MORPHINE
     Indication: Substance use
     Dosage: UNK
     Route: 042
     Dates: start: 201103, end: 201103
  2. CODEINE [Suspect]
     Active Substance: CODEINE
     Indication: Product used for unknown indication
     Route: 042
  3. DEXTROMETHORPHAN [Suspect]
     Active Substance: DEXTROMETHORPHAN
     Indication: Substance use
     Dosage: UNK
     Route: 042
     Dates: start: 201103, end: 201103
  4. 6-ACETYLMORPHINE [Suspect]
     Active Substance: 6-ACETYLMORPHINE
     Indication: Product used for unknown indication
     Route: 065
  5. COCAINE [Suspect]
     Active Substance: COCAINE
     Indication: Product used for unknown indication
     Route: 065
  6. HEROIN [Suspect]
     Active Substance: DIAMORPHINE
     Indication: Product used for unknown indication
     Route: 065
  7. METHADONE [Suspect]
     Active Substance: METHADONE HYDROCHLORIDE
     Indication: Substance use
     Route: 042
  8. ACETYLDIHYDROCODEINE HYDROCHLORIDE [Suspect]
     Active Substance: ACETYLDIHYDROCODEINE HYDROCHLORIDE
     Indication: Product used for unknown indication
     Route: 065
  9. METHADONE HYDROCHLORIDE [Suspect]
     Active Substance: METHADONE HYDROCHLORIDE
     Indication: Product used for unknown indication
     Route: 065
  10. CAFFEINE [Suspect]
     Active Substance: CAFFEINE
     Indication: Substance use
     Route: 042

REACTIONS (4)
  - Drug dependence [Fatal]
  - Overdose [Fatal]
  - Drug interaction [Fatal]
  - Death [Fatal]

NARRATIVE: CASE EVENT DATE: 20110301
